FAERS Safety Report 13919916 (Version 1)
Quarter: 2017Q3

REPORT INFORMATION
  Report Type: Spontaneous
  Country: US (occurrence: US)
  Receive Date: 20170830
  Receipt Date: 20170830
  Transmission Date: 20171127
  Serious: No
  Sender: FDA-Public Use
  Company Number: US-BECTON DICKINSON-PI-04593

PATIENT
  Age: 8 Year

DRUGS (1)
  1. CHLORAPREP WITH TINT [Suspect]
     Active Substance: CHLORHEXIDINE GLUCONATE\ISOPROPYL ALCOHOL
     Indication: NO ADVERSE EVENT
     Dosage: 0 ML, ONCE
     Route: 061
     Dates: start: 20100312, end: 20100312

REACTIONS (4)
  - No adverse event [Recovered/Resolved]
  - Off label use [Recovered/Resolved]
  - Accident [None]
  - Thermal burn [None]

NARRATIVE: CASE EVENT DATE: 20100312
